FAERS Safety Report 6847381-7 (Version None)
Quarter: 2010Q3

REPORT INFORMATION
  Report Type: 
  Country: None (occurrence: None)
  Receive Date: 20100716
  Receipt Date: 20100713
  Transmission Date: 20110219
  Serious: Yes (Other)
  Sender: FDA-Public Use
  Company Number: CA-ASTRAZENECA-2010SE32112

PATIENT
  Age: 73 Year
  Sex: Female
  Weight: 61.7 kg

DRUGS (10)
  1. CRESTOR [Suspect]
     Indication: BLOOD CHOLESTEROL
     Route: 048
     Dates: start: 20100601, end: 20100706
  2. LOPRESSOR [Concomitant]
     Indication: MYOCARDIAL ISCHAEMIA
  3. VASOTEC [Concomitant]
     Indication: MYOCARDIAL INFARCTION
  4. HYDROCHLOROTHIAZIDE [Concomitant]
  5. FOSAMAX [Concomitant]
     Indication: OSTEOPOROSIS
  6. ASPIRIN [Concomitant]
  7. BLOOD PRESSURE PILLS [Concomitant]
  8. WATER PILLS [Concomitant]
  9. FISH OIL [Concomitant]
     Dosage: X 3 MONTHS
  10. VITAMIN D [Concomitant]

REACTIONS (3)
  - ERYTHEMA [None]
  - LIMB DISCOMFORT [None]
  - PAIN IN EXTREMITY [None]
